FAERS Safety Report 5356007-3 (Version None)
Quarter: 2007Q2

REPORT INFORMATION
  Report Type: 
  Country: None (occurrence: None)
  Receive Date: 20070613
  Receipt Date: 20070605
  Transmission Date: 20071010
  Serious: Yes (Hospitalization, Other)
  Sender: FDA-Public Use
  Company Number: AT-PFIZER INC-2007045317

PATIENT
  Sex: Female
  Weight: 54 kg

DRUGS (2)
  1. CHAMPIX [Suspect]
     Indication: SMOKING CESSATION THERAPY
     Route: 048
  2. VITEX AGNUS CASTUS [Concomitant]

REACTIONS (2)
  - MEMORY IMPAIRMENT [None]
  - VERTIGO [None]
